FAERS Safety Report 7912863-3 (Version None)
Quarter: 2011Q4

REPORT INFORMATION
  Report Type: 
  Country: None (occurrence: None)
  Receive Date: 20111114
  Receipt Date: 20111104
  Transmission Date: 20120403
  Serious: Yes (Hospitalization)
  Sender: FDA-Public Use
  Company Number: NL-GLAXOSMITHKLINE-Z0011983B

PATIENT
  Sex: Female
  Weight: 83.1 kg

DRUGS (2)
  1. TOPOTECAN [Suspect]
     Indication: NEOPLASM
     Dosage: 8MG CYCLIC
     Route: 048
     Dates: start: 20110407
  2. PAZOPANIB [Suspect]
     Indication: NEOPLASM
     Dosage: 800MG PER DAY
     Route: 048
     Dates: start: 20110407

REACTIONS (1)
  - MUSCLE SPASMS [None]
